FAERS Safety Report 8999477 (Version 1)
Quarter: 2013Q1

REPORT INFORMATION
  Report Type: Spontaneous
  Country: JP (occurrence: JP)
  Receive Date: 20130103
  Receipt Date: 20130103
  Transmission Date: 20140127
  Serious: Yes (Hospitalization)
  Sender: FDA-Public Use
  Company Number: JP-GLAXOSMITHKLINE-B0854614A

PATIENT
  Age: 80 Year
  Sex: Male

DRUGS (6)
  1. VALTREX [Suspect]
     Indication: HERPES ZOSTER
     Dosage: 1000MG THREE TIMES PER DAY
     Route: 048
  2. BAYASPIRIN [Concomitant]
     Dosage: 100MG PER DAY
     Route: 048
  3. JANUVIA [Concomitant]
     Dosage: 50MG PER DAY
     Route: 048
  4. DAONIL [Concomitant]
     Dosage: 2.5MG PER DAY
     Route: 048
  5. METGLUCO [Concomitant]
     Dosage: 250MG PER DAY
     Route: 048
  6. BEPRICOR [Concomitant]
     Dosage: 50MG THREE TIMES PER DAY
     Route: 048

REACTIONS (3)
  - Renal failure acute [Recovered/Resolved]
  - Gastroenteritis [Unknown]
  - Dehydration [Unknown]
